FAERS Safety Report 16913988 (Version 1)
Quarter: 2019Q4

REPORT INFORMATION
  Report Type: Spontaneous
  Country: US (occurrence: US)
  Receive Date: 20190821
  Receipt Date: 20190821
  Transmission Date: 20200122
  Serious: No
  Sender: FDA-Public Use
  Company Number: None

PATIENT
  Age: 62 Year
  Sex: Female

DRUGS (1)
  1. SKYRIZI [Suspect]
     Active Substance: RISANKIZUMAB-RZAA
     Dosage: DATES OF USE 09/07/2019 - 06/30/2019
     Route: 058
     Dates: end: 20190630

REACTIONS (1)
  - Candida infection [None]

NARRATIVE: CASE EVENT DATE: 20190730
